FAERS Safety Report 5158215-3 (Version None)
Quarter: 2006Q4

REPORT INFORMATION
  Report Type: 
  Country: None (occurrence: None)
  Receive Date: 20061121
  Receipt Date: 20061121
  Transmission Date: 20070319
  Serious: No
  Sender: FDA-Public Use
  Company Number: None

PATIENT
  Sex: Female
  Weight: 54.4316 kg

DRUGS (1)
  1. EQUATE BRAND ACETAMINOPHEN 500 MG [Suspect]
     Dosage: 500-1000 MG Q 4 HR PRN PO  APPROX I WEEK
     Route: 048

REACTIONS (3)
  - ABDOMINAL PAIN [None]
  - CYSTITIS HAEMORRHAGIC [None]
  - PHARMACEUTICAL PRODUCT COMPLAINT [None]
